FAERS Safety Report 9382370 (Version 2)
Quarter: 2013Q3

REPORT INFORMATION
  Report Type: Spontaneous
  Country: AU (occurrence: AU)
  Receive Date: 20130703
  Receipt Date: 20130827
  Transmission Date: 20140515
  Serious: Yes (Death)
  Sender: FDA-Public Use
  Company Number: AU-PFIZER INC-2013196155

PATIENT
  Sex: Female

DRUGS (20)
  1. RAMIPRIL [Suspect]
     Dosage: UNK
     Route: 048
  2. METOPROLOL TARTRATE [Suspect]
     Dosage: UNK
     Route: 048
  3. SPIRIVA [Suspect]
     Dosage: UNK
     Route: 065
  4. TEMAZEPAM [Suspect]
     Dosage: UNK
     Route: 065
  5. SPIRONOLACTONE [Suspect]
     Dosage: UNK
     Route: 065
  6. FLUCONAZOLE [Suspect]
     Dosage: UNK
     Route: 048
  7. NIZATIDINE [Suspect]
     Dosage: UNK
     Route: 065
  8. NEXIUM [Suspect]
     Dosage: UNK
     Route: 048
  9. PANAMAX [Suspect]
     Dosage: UNK
     Route: 065
  10. ATROVENT [Suspect]
     Dosage: UNK
     Route: 065
  11. FAMVIR [Suspect]
     Dosage: UNK
     Route: 065
  12. FUNGILIN [Suspect]
     Dosage: UNK
     Route: 065
  13. KENALOG [Suspect]
     Dosage: UNK
     Route: 065
  14. MAXOLON [Suspect]
     Dosage: UNK
     Route: 065
  15. PANADEINE FORTE [Suspect]
     Dosage: UNK
     Route: 065
  16. PARIET [Suspect]
     Dosage: UNK
     Route: 065
  17. PRADAXA [Suspect]
     Indication: CEREBROVASCULAR ACCIDENT PROPHYLAXIS
     Dosage: 150 MG, DAILY
     Dates: start: 20110804
  18. PRADAXA [Suspect]
     Indication: ARRHYTHMIA
  19. SERETIDE [Suspect]
     Dosage: UNK
     Route: 065
  20. VENTOLINE [Suspect]
     Dosage: UNK
     Route: 065

REACTIONS (1)
  - Pancreatic carcinoma [Fatal]
